FAERS Safety Report 6210947-1 (Version None)
Quarter: 2009Q2

REPORT INFORMATION
  Report Type: 
  Country: None (occurrence: None)
  Receive Date: 20090602
  Receipt Date: 20071011
  Transmission Date: 20091009
  Serious: Yes (Hospitalization, Other)
  Sender: FDA-Public Use
  Company Number: US-ASTRAZENECA-2007UW18670

PATIENT
  Age: 17366 Day
  Sex: Male
  Weight: 93 kg

DRUGS (30)
  1. SEROQUEL [Suspect]
     Indication: DEPRESSION
     Route: 048
     Dates: start: 19981217
  2. SEROQUEL [Suspect]
     Dosage: 100-300MG
     Route: 048
     Dates: start: 19990101
  3. VYTORIN [Concomitant]
     Indication: HYPERLIPIDAEMIA
     Dosage: 10/20 MG
     Dates: start: 20060911
  4. NIASPAN [Concomitant]
     Indication: HYPERLIPIDAEMIA
     Route: 048
  5. NIASPAN [Concomitant]
     Dosage: 50-100 MG
     Route: 048
     Dates: start: 20020221
  6. LOVASTATIN [Concomitant]
     Dates: start: 20030721
  7. AMBIEN [Concomitant]
     Route: 048
     Dates: start: 20010102
  8. EFFEXOR XR [Concomitant]
     Route: 048
     Dates: start: 19981217
  9. DEPAKOTE ER [Concomitant]
     Route: 048
     Dates: start: 20010618
  10. LORTAB [Concomitant]
  11. LAMICTAL [Concomitant]
     Dosage: 100-200 MG
     Route: 048
     Dates: start: 19981217
  12. LIPITOR [Concomitant]
     Dates: start: 20020819
  13. LISINOPRIL [Concomitant]
     Route: 048
     Dates: start: 20030827
  14. LUNESTA [Concomitant]
     Dates: start: 20051215
  15. PROPRANOLOL HYDROCHLORIDE [Concomitant]
     Dates: start: 20030926
  16. REMERON [Concomitant]
     Dosage: 30-45 MG
     Dates: start: 20010426
  17. SONATA [Concomitant]
     Dates: start: 20020510
  18. SYNTHROID [Concomitant]
     Dates: start: 20010426
  19. NOVOLOG [Concomitant]
  20. ESKALITH CR [Concomitant]
     Dates: start: 20010426
  21. LITHOBID [Concomitant]
     Dates: start: 20010731
  22. UNIRETIC [Concomitant]
     Dosage: 7.5-12.5 MG
  23. ZOCOR [Concomitant]
     Dosage: 20-40 MG
     Dates: start: 20010809
  24. PROVIGIL [Concomitant]
     Dates: start: 20060215
  25. TEMAZEPAM [Concomitant]
     Dates: start: 20031029
  26. FOLTX [Concomitant]
  27. PLAVIX [Concomitant]
     Dates: start: 20030814
  28. GLUCOPHAGE [Concomitant]
     Route: 048
     Dates: start: 20010809
  29. WELLBUTRIN SR [Concomitant]
     Route: 048
     Dates: start: 19981217
  30. GLUCOVANCE [Concomitant]
     Dosage: 2.5/500 MG
     Dates: start: 20020222

REACTIONS (6)
  - CEREBRAL ARTERY EMBOLISM [None]
  - CEREBRAL INFARCTION [None]
  - CEREBROVASCULAR ACCIDENT [None]
  - DIABETES MELLITUS [None]
  - DIABETES MELLITUS INADEQUATE CONTROL [None]
  - TYPE 2 DIABETES MELLITUS [None]
